FAERS Safety Report 6185059-6 (Version None)
Quarter: 2009Q2

REPORT INFORMATION
  Report Type: 
  Country: None (occurrence: None)
  Receive Date: 20090511
  Receipt Date: 20090429
  Transmission Date: 20091009
  Serious: Yes (Hospitalization, Other)
  Sender: FDA-Public Use
  Company Number: DE-JNJFOC-20090500159

PATIENT
  Age: 24 Year
  Sex: Male

DRUGS (14)
  1. REMICADE [Suspect]
     Route: 042
  2. REMICADE [Suspect]
     Route: 042
  3. REMICADE [Suspect]
     Route: 042
  4. REMICADE [Suspect]
     Indication: CROHN'S DISEASE
     Dosage: GIVEN FOR 3 INFUSIONS
     Route: 042
  5. AZATHIOPRINE [Concomitant]
     Indication: CROHN'S DISEASE
  6. METHOTREXATE [Concomitant]
     Indication: DRUG USE FOR UNKNOWN INDICATION
  7. HUMIRA [Concomitant]
     Indication: DRUG USE FOR UNKNOWN INDICATION
  8. PANCREATIC ENZYMES [Concomitant]
     Indication: PANCREATIC INSUFFICIENCY
  9. FERRLECIT [Concomitant]
     Indication: IRON DEFICIENCY ANAEMIA
  10. BUDESONIDE [Concomitant]
  11. VITAMIN D [Concomitant]
  12. BOSWELLIA SERRATA [Concomitant]
  13. MUTAFLOR [Concomitant]
  14. MUCOFALK [Concomitant]

REACTIONS (17)
  - ANAL ABSCESS [None]
  - BURNOUT SYNDROME [None]
  - CACHEXIA [None]
  - CHOLANGITIS SCLEROSING [None]
  - CONDITION AGGRAVATED [None]
  - DEHYDRATION [None]
  - DERMATITIS ALLERGIC [None]
  - DIARRHOEA HAEMORRHAGIC [None]
  - DRUG INEFFECTIVE [None]
  - INFECTION [None]
  - IRON DEFICIENCY ANAEMIA [None]
  - LEFT VENTRICULAR HYPERTROPHY [None]
  - METASTASES TO LIVER [None]
  - METASTASES TO PERITONEUM [None]
  - NEUROENDOCRINE CARCINOMA [None]
  - RECTAL CANCER [None]
  - SINUS TACHYCARDIA [None]
